FAERS Safety Report 19135234 (Version 2)
Quarter: 2021Q3

REPORT INFORMATION
  Report Type: Spontaneous
  Country: CZ (occurrence: CZ)
  Receive Date: 20210414
  Receipt Date: 20210914
  Transmission Date: 20211014
  Serious: Yes (Other)
  Sender: FDA-Public Use
  Company Number: CZ-MYLANLABS-2021M1021824

PATIENT
  Age: 55 Year
  Sex: Male

DRUGS (6)
  1. AMLODIPINE [Suspect]
     Active Substance: AMLODIPINE BESYLATE
     Dosage: 1?0?0
  2. AMLODIPINE [Suspect]
     Active Substance: AMLODIPINE BESYLATE
     Indication: HYPERTENSION
     Dosage: 10 MILLIGRAM, QD, 1?0?0
     Route: 048
  3. IPRATROPIUM [Concomitant]
     Active Substance: IPRATROPIUM
     Indication: DYSPNOEA
     Dosage: UNK
  4. CETIRIZINE [Concomitant]
     Active Substance: CETIRIZINE HYDROCHLORIDE
     Indication: MULTIPLE ALLERGIES
     Dosage: UNK
  5. FENOTEROL [Concomitant]
     Active Substance: FENOTEROL
     Indication: DYSPNOEA
     Dosage: UNK
  6. BISOPROLOL [Suspect]
     Active Substance: BISOPROLOL
     Indication: HYPERTENSION
     Dosage: 5 MILLIGRAM DAILY, QD, 5 MG 1?0?0
     Route: 048

REACTIONS (9)
  - Erectile dysfunction [Recovering/Resolving]
  - Treatment noncompliance [Unknown]
  - Headache [Unknown]
  - Microalbuminuria [Unknown]
  - Diastolic dysfunction [Unknown]
  - Joint swelling [Recovered/Resolved]
  - Product dose omission issue [Unknown]
  - Left ventricular hypertrophy [Unknown]
  - Exercise tolerance decreased [Unknown]
